FAERS Safety Report 12541480 (Version 1)
Quarter: 2016Q3

REPORT INFORMATION
  Report Type: Report from Study
  Country: US (occurrence: US)
  Receive Date: 20160708
  Receipt Date: 20160708
  Transmission Date: 20161109
  Serious: Yes (Other)
  Sender: FDA-Public Use
  Company Number: US-009507513-1606USA014221

PATIENT
  Age: 40 Year
  Sex: Female

DRUGS (1)
  1. BOCEPREVIR [Suspect]
     Active Substance: BOCEPREVIR
     Indication: HEPATITIS C
     Dosage: UNK, FREQUENCY: ACCORDING TO LABEL
     Dates: end: 2011

REACTIONS (1)
  - Hepatitis C [Recovered/Resolved with Sequelae]

NARRATIVE: CASE EVENT DATE: 2011
